FAERS Safety Report 9795041 (Version 1)
Quarter: 2014Q1

REPORT INFORMATION
  Report Type: Spontaneous
  Country: US (occurrence: US)
  Receive Date: 20140102
  Receipt Date: 20140102
  Transmission Date: 20141002
  Serious: Yes (Other)
  Sender: FDA-Public Use
  Company Number: US-JNJFOC-20131213564

PATIENT
  Sex: Female

DRUGS (6)
  1. TYLENOL UNSPECIFIED [Suspect]
     Route: 048
  2. TYLENOL UNSPECIFIED [Suspect]
     Indication: PRURITUS
     Route: 048
  3. REMICADE [Concomitant]
     Indication: DIVERTICULITIS
     Route: 065
  4. REMICADE [Concomitant]
     Indication: RHEUMATOID ARTHRITIS
     Route: 065
  5. BENADRYL [Concomitant]
     Indication: PRURITUS
     Route: 042
  6. AVEENO [Concomitant]
     Indication: PRURITUS
     Route: 065

REACTIONS (2)
  - Depression [Unknown]
  - Off label use [Unknown]
